FAERS Safety Report 5766061-2 (Version None)
Quarter: 2008Q2

REPORT INFORMATION
  Report Type: 
  Country: None (occurrence: None)
  Receive Date: 20080611
  Receipt Date: 20070914
  Transmission Date: 20081010
  Serious: No
  Sender: FDA-Public Use
  Company Number: US-BRISTOL-MYERS SQUIBB COMPANY-13906771

PATIENT
  Sex: Male

DRUGS (2)
  1. PRINIVIL [Suspect]
     Route: 048
  2. FOSINOPRIL SODIUM [Suspect]
     Dosage: PATIENT WAS PRESCRIBED FOSINOPRIL FOR 3-4 YEARS.

REACTIONS (1)
  - BLOOD PRESSURE INCREASED [None]
